FAERS Safety Report 20155595 (Version 1)
Quarter: 2021Q4

REPORT INFORMATION
  Report Type: Report from Study
  Country: ES (occurrence: ES)
  Receive Date: 20211207
  Receipt Date: 20211207
  Transmission Date: 20220303
  Serious: Yes (Hospitalization)
  Sender: FDA-Public Use
  Company Number: None

PATIENT
  Age: 70 Year
  Sex: Male

DRUGS (10)
  1. AMLODIPINE\HYDROCHLOROTHIAZIDE\VALSARTAN [Interacting]
     Active Substance: AMLODIPINE\HYDROCHLOROTHIAZIDE\VALSARTAN
     Indication: Hypertension
     Dosage: 1 TABLET PER DAY
     Route: 048
     Dates: start: 20210409, end: 202105
  2. BISOPROLOL [Interacting]
     Active Substance: BISOPROLOL
     Indication: Hypertension
     Dosage: 1 TABLET EVERY 24 HOURS
     Route: 048
     Dates: start: 20210405, end: 202105
  3. EPLERENONE [Interacting]
     Active Substance: EPLERENONE
     Indication: Product used for unknown indication
     Dosage: 1 TABLET PER DAY
     Route: 048
     Dates: start: 20210405, end: 20210504
  4. ASPIRIN [Concomitant]
     Active Substance: ASPIRIN
     Indication: Prophylaxis
     Dosage: 1 TABLET PER DAY
     Route: 048
     Dates: start: 20210405
  5. EDOXABAN [Concomitant]
     Active Substance: EDOXABAN
     Indication: Prophylaxis
     Dosage: 1 TABLET PER DAY
     Route: 048
     Dates: start: 20201014, end: 202105
  6. DAPAGLIFLOZIN [Concomitant]
     Active Substance: DAPAGLIFLOZIN
     Dosage: 1 TABLET EVERY 24 HOURS
     Route: 048
     Dates: start: 201812
  7. TICAGRELOR [Concomitant]
     Active Substance: TICAGRELOR
     Dosage: 1 COMPRIMIDO CADA 12 HORAS BUCODISPERSABLES, 56 COMPRIMIDOS
     Route: 048
     Dates: start: 20210405, end: 202105
  8. ATORVASTATIN [Concomitant]
     Active Substance: ATORVASTATIN
     Dosage: 1 TABLET PER DAY
     Route: 048
     Dates: start: 201405
  9. ATROALDO [Concomitant]
     Dosage: 2 DOSIS CADA 8 HORAS, 20 MICROGRAMOS/PULSACION SOLUCION PARA INHALACION EN ENVASE A PRESION, 1 INHAL
     Route: 055
     Dates: start: 201904
  10. FUROSEMIDE [Concomitant]
     Active Substance: FUROSEMIDE
     Dosage: 1 TABLET PER DAY
     Route: 048
     Dates: start: 20210405

REACTIONS (2)
  - Hypotension [Recovered/Resolved]
  - Drug interaction [Unknown]

NARRATIVE: CASE EVENT DATE: 20210503
